FAERS Safety Report 9416078 (Version 1)
Quarter: 2013Q3

REPORT INFORMATION
  Report Type: Spontaneous
  Country: US (occurrence: None)
  Receive Date: 20130723
  Receipt Date: 20130723
  Transmission Date: 20140515
  Serious: Yes (Hospitalization)
  Sender: FDA-Public Use
  Company Number: None

PATIENT
  Age: 70 Year
  Sex: Male

DRUGS (6)
  1. RANIBIZUMAB [Suspect]
     Indication: DIABETIC RETINAL OEDEMA
     Dosage: Q3M INTRAVITREAL
     Dates: start: 20130108
  2. ICO-007 [Suspect]
     Indication: DIABETIC RETINAL OEDEMA
     Dosage: Q3MTHS INTRAVITREAL
     Dates: start: 20130117
  3. METFORMIN HCL [Concomitant]
  4. LOTENSIN [Concomitant]
  5. CARVEDILOL [Concomitant]
  6. ATENOLOL [Concomitant]

REACTIONS (1)
  - Hypertension [None]
